FAERS Safety Report 21531380 (Version 1)
Quarter: 2022Q4

REPORT INFORMATION
  Report Type: Spontaneous
  Country: US (occurrence: None)
  Receive Date: 20221028
  Receipt Date: 20221028
  Transmission Date: 20230113
  Serious: No
  Sender: FDA-Public Use
  Company Number: None

PATIENT
  Age: 68 Year
  Sex: Female

DRUGS (1)
  1. HUMIRA [Suspect]
     Active Substance: ADALIMUMAB
     Indication: Psoriatic arthropathy
     Dosage: FREQUENCY : EVERY OTHER WEEK;?
     Route: 058
     Dates: start: 202108

REACTIONS (9)
  - Therapy interrupted [None]
  - Sinusitis [None]
  - Ear infection [None]
  - Immune system disorder [None]
  - Formication [None]
  - Peripheral swelling [None]
  - Peripheral swelling [None]
  - Pain in extremity [None]
  - Pain in extremity [None]
